FAERS Safety Report 11245613 (Version 1)
Quarter: 2015Q3

REPORT INFORMATION
  Report Type: Spontaneous
  Country: CA (occurrence: CA)
  Receive Date: 20150707
  Receipt Date: 20150707
  Transmission Date: 20151125
  Serious: Yes (Other)
  Sender: FDA-Public Use
  Company Number: CA-HOSPIRA-2750616

PATIENT

DRUGS (4)
  1. BACLOFEN. [Suspect]
     Active Substance: BACLOFEN
     Indication: PRODUCT USED FOR UNKNOWN INDICATION
     Route: 037
  2. BACLOFEN. [Suspect]
     Active Substance: BACLOFEN
     Indication: PRODUCT USED FOR UNKNOWN INDICATION
     Route: 037
  3. FENTANYL. [Suspect]
     Active Substance: FENTANYL
     Indication: PRODUCT USED FOR UNKNOWN INDICATION
     Route: 037
  4. FENTANYL CITRATE. [Suspect]
     Active Substance: FENTANYL CITRATE
     Indication: PRODUCT USED FOR UNKNOWN INDICATION
     Dosage: NOT REPORTED
     Route: 037

REACTIONS (6)
  - Formication [Unknown]
  - Muscle spasms [Unknown]
  - Hot flush [Unknown]
  - Clonus [Unknown]
  - Drug withdrawal syndrome [Unknown]
  - Fall [Unknown]
